FAERS Safety Report 8492125-9 (Version None)
Quarter: 2012Q3

REPORT INFORMATION
  Report Type: 
  Country: None (occurrence: None)
  Receive Date: 20120706
  Receipt Date: 20120704
  Transmission Date: 20120928
  Serious: Yes (Other)
  Sender: FDA-Public Use
  Company Number: IT-ROCHE-1024628

PATIENT
  Sex: Male
  Weight: 70 kg

DRUGS (6)
  1. AVASTIN [Suspect]
     Indication: GLIOBLASTOMA
     Route: 042
     Dates: start: 20100621
  2. AMITRIPTYLINE HCL [Concomitant]
     Indication: GLIOBLASTOMA
     Route: 048
     Dates: start: 20110920
  3. IRINOTECAN HYDROCHLORIDE [Suspect]
     Indication: GLIOBLASTOMA
     Route: 042
     Dates: start: 20100621, end: 20110930
  4. LEVETIRACETAM [Concomitant]
     Indication: GLIOBLASTOMA
     Route: 048
     Dates: start: 20090701
  5. LUCEN [Concomitant]
     Indication: GLIOBLASTOMA
     Route: 048
     Dates: start: 20110701
  6. LOMUSTINE [Suspect]
     Indication: GLIOBLASTOMA
     Route: 048
     Dates: start: 20120607

REACTIONS (3)
  - HYPERTENSION [None]
  - BRADYCARDIA [None]
  - ATRIOVENTRICULAR BLOCK [None]
